FAERS Safety Report 4848950-6 (Version None)
Quarter: 2005Q4

REPORT INFORMATION
  Report Type: 
  Country: None (occurrence: None)
  Receive Date: 20051208
  Receipt Date: 20051205
  Transmission Date: 20060501
  Serious: Yes (Hospitalization, Other)
  Sender: FDA-Public Use
  Company Number: US-MERCK-0512USA00681

PATIENT
  Age: 63 Year
  Sex: Female
  Weight: 82 kg

DRUGS (13)
  1. VIOXX [Suspect]
     Indication: ARTHRITIS
     Route: 048
     Dates: start: 20030901, end: 20041001
  2. PREDNISONE [Concomitant]
     Route: 065
  3. DIAZEPAM [Concomitant]
     Route: 065
  4. METHOTREXATE [Concomitant]
     Route: 065
  5. VERAPAMIL [Concomitant]
     Route: 065
  6. CYCLOBENZAPRINE HYDROCHLORIDE [Concomitant]
     Route: 065
  7. ZANTAC [Concomitant]
     Route: 065
  8. PENTOXIFYLLINE [Concomitant]
     Route: 065
  9. FUROSEMIDE [Concomitant]
     Route: 065
  10. ASPIRIN [Concomitant]
     Route: 065
  11. MONOPRIL [Concomitant]
     Route: 065
  12. CERTAGEN [Concomitant]
     Route: 065
  13. CALCIUM (UNSPECIFIED) [Concomitant]
     Route: 065

REACTIONS (3)
  - BACK DISORDER [None]
  - CEREBROVASCULAR ACCIDENT [None]
  - LENS IMPLANT [None]
